FAERS Safety Report 12521000 (Version 1)
Quarter: 2016Q2

REPORT INFORMATION
  Report Type: Spontaneous
  Country: US (occurrence: None)
  Receive Date: 20160630
  Receipt Date: 20160630
  Transmission Date: 20160815
  Serious: Yes (Hospitalization)
  Sender: FDA-Public Use
  Company Number: None

PATIENT
  Age: 88 Year
  Sex: Female

DRUGS (18)
  1. LOSARTAN. [Concomitant]
     Active Substance: LOSARTAN
  2. OCUVITE-MULTI VIT [Concomitant]
  3. PLAVIX [Concomitant]
     Active Substance: CLOPIDOGREL BISULFATE
  4. C-CAP [Concomitant]
  5. ISOSORBIDE MON ER [Concomitant]
  6. CRESTOR [Concomitant]
     Active Substance: ROSUVASTATIN CALCIUM
  7. VITAMIN B12 [Concomitant]
     Active Substance: CYANOCOBALAMIN
  8. FERROUS SULFATE. [Concomitant]
     Active Substance: FERROUS SULFATE
  9. PREDNISONE. [Concomitant]
     Active Substance: PREDNISONE
  10. TRAMADOL HCL [Concomitant]
     Active Substance: TRAMADOL HYDROCHLORIDE
  11. MEGA RED (OMEGA3 KRILL OIL) [Concomitant]
  12. VITAMIN D [Concomitant]
     Active Substance: CHOLECALCIFEROL
  13. METHOTREXATE 2.5MG DAVA PHARM [Suspect]
     Active Substance: METHOTREXATE
     Indication: RHEUMATOID ARTHRITIS
     Dosage: 2.5MG 6 PILLS 6-SIX-ONE DAY OF WEEK MOUTH
     Route: 048
     Dates: start: 20151006, end: 20160404
  14. WALKER SEAT [Concomitant]
     Active Substance: DEVICE
  15. POT CHLORIDE [Concomitant]
     Active Substance: POTASSIUM CHLORIDE
  16. AMLODIPINE BESYLATE. [Concomitant]
     Active Substance: AMLODIPINE BESYLATE
  17. CQ10 [Concomitant]
     Active Substance: UBIDECARENONE
  18. BIOTIN [Concomitant]
     Active Substance: BIOTIN

REACTIONS (13)
  - Abdominal pain upper [None]
  - Constipation [None]
  - Lip blister [None]
  - Diarrhoea [None]
  - Alopecia [None]
  - Vomiting [None]
  - Pulmonary mass [None]
  - Decreased appetite [None]
  - Oral mucosal blistering [None]
  - Faeces discoloured [None]
  - Anaemia [None]
  - Anal incontinence [None]
  - Skin discolouration [None]

NARRATIVE: CASE EVENT DATE: 20160408
